FAERS Safety Report 9502675 (Version 1)
Quarter: 2013Q1

REPORT INFORMATION
  Report Type: Spontaneous
  Country: US (occurrence: None)
  Receive Date: 20130225
  Receipt Date: 20130225
  Transmission Date: 20140127
  Serious: Yes (Other)
  Sender: FDA-Public Use
  Company Number: 2012-110

PATIENT
  Age: 43 Year
  Sex: Female
  Weight: 52.6 kg

DRUGS (7)
  1. PRIALT [Suspect]
     Indication: BACK PAIN
     Dates: start: 20120227, end: 20120306
  2. TOPAMAX (TOPIRAMATE) [Concomitant]
  3. CLONAZEPAM (CLONAZEPAM) [Concomitant]
  4. SOMA (CARISOPRODOL) [Concomitant]
  5. LYRICA (PREGABALIN) [Concomitant]
  6. ZOLOFT (SERTRALINE HYDROCHLORIDE) [Concomitant]
  7. MIDODRINE [Concomitant]

REACTIONS (3)
  - Loss of consciousness [None]
  - Hypotension [None]
  - Somnolence [None]
